FAERS Safety Report 25142889 (Version 1)
Quarter: 2025Q1

REPORT INFORMATION
  Report Type: Spontaneous
  Country: US (occurrence: US)
  Receive Date: 20250331
  Receipt Date: 20250331
  Transmission Date: 20250408
  Serious: No
  Sender: AMGEN
  Company Number: US-AMGEN-USASP2025058478

PATIENT
  Sex: Male

DRUGS (1)
  1. ARANESP [Suspect]
     Active Substance: DARBEPOETIN ALFA
     Indication: Anaemia
     Dosage: UNK, QMO
     Route: 065

REACTIONS (4)
  - Red blood cell count decreased [Unknown]
  - Pruritus [Unknown]
  - Rash macular [Unknown]
  - Fatigue [Unknown]
